APPROVED DRUG PRODUCT: PRUCALOPRIDE SUCCINATE
Active Ingredient: PRUCALOPRIDE SUCCINATE
Strength: EQ 2MG BASE
Dosage Form/Route: TABLET;ORAL
Application: A218778 | Product #002
Applicant: TORRENT PHARMACEUTICALS LTD
Approved: Jun 24, 2025 | RLD: No | RS: No | Type: DISCN